FAERS Safety Report 4851865-0 (Version None)
Quarter: 2005Q4

REPORT INFORMATION
  Report Type: 
  Country: None (occurrence: None)
  Receive Date: 20051209
  Receipt Date: 20051128
  Transmission Date: 20060501
  Serious: Yes (Other)
  Sender: FDA-Public Use
  Company Number: 163-20785-03080172

PATIENT

DRUGS (4)
  1. THALOMID [Suspect]
     Indication: RENAL CANCER METASTATIC
     Dosage: 200-400 MG, DAILY, ORAL, INCREASING DOSE
     Route: 048
  2. GEMCITABINE (GEMCITABINE) [Suspect]
     Indication: RENAL CANCER METASTATIC
     Dosage: 600 MG/M2, INTRAVENOUS
     Route: 042
  3. FLUOROURACIL [Suspect]
     Indication: RENAL CANCER METASTATIC
     Dosage: 150 MG/M2, INTRAVENOUS
     Route: 042
  4. WARFARIN SODIUM [Concomitant]

REACTIONS (2)
  - DRUG INTERACTION [None]
  - PULMONARY EMBOLISM [None]
